FAERS Safety Report 23900551 (Version 2)
Quarter: 2025Q3

REPORT INFORMATION
  Report Type: Report from Study
  Country: KR (occurrence: KR)
  Receive Date: 20240526
  Receipt Date: 20250916
  Transmission Date: 20251021
  Serious: Yes (Other)
  Sender: TAKEDA
  Company Number: KR-TAKEDA-2024TUS051434

PATIENT
  Age: 69 Year
  Sex: Male
  Weight: 80 kg

DRUGS (22)
  1. VEDOLIZUMAB [Suspect]
     Active Substance: VEDOLIZUMAB
     Indication: Colitis ulcerative
  2. LEVOTHYROXINE SODIUM [Concomitant]
     Active Substance: LEVOTHYROXINE SODIUM
     Indication: Thyroid cancer
     Dosage: 100 MICROGRAM, QD
     Dates: start: 2022
  3. LEVOTHYROXINE SODIUM [Concomitant]
     Active Substance: LEVOTHYROXINE SODIUM
     Dosage: UNK UNK, QD
     Dates: start: 2022
  4. PROPIVERINE [Concomitant]
     Active Substance: PROPIVERINE
     Indication: Benign prostatic hyperplasia
     Dosage: 20 MILLIGRAM, QD
     Dates: start: 2020, end: 20240404
  5. PROSCAR [Concomitant]
     Active Substance: FINASTERIDE
     Indication: Benign prostatic hyperplasia
     Dosage: 5 MILLIGRAM, QD
     Dates: start: 2020, end: 20240404
  6. TWYNSTA [Concomitant]
     Active Substance: AMLODIPINE BESYLATE\TELMISARTAN
     Indication: Hypertension
     Dosage: 40/5 MILLIGRAM, QD
  7. BISOPROLOL FUMARATE [Concomitant]
     Active Substance: BISOPROLOL FUMARATE
     Indication: Hypertension
     Dosage: 20 MILLIGRAM, QD
  8. D3 base [Concomitant]
     Indication: Vitamin D deficiency
     Dosage: 2.5 MILLILITER, Q8WEEKS
     Dates: start: 20230718
  9. SHINGRIX [Concomitant]
     Active Substance: RECOMBINANT VARICELLA ZOSTER VIRUS (VZV) GLYCOPROTEIN E
     Indication: Herpes zoster
     Dosage: 0.5 MILLILITER, QD
     Dates: start: 20240227, end: 20240227
  10. SHINGRIX [Concomitant]
     Active Substance: RECOMBINANT VARICELLA ZOSTER VIRUS (VZV) GLYCOPROTEIN E
     Dosage: 0.5 MILLILITER, QD
     Dates: start: 20240423, end: 20240423
  11. Hinechol [Concomitant]
     Indication: Benign prostatic hyperplasia
     Dosage: 25 MILLIGRAM, QD
     Dates: start: 20240405, end: 20240705
  12. NOCDURNA [Concomitant]
     Active Substance: DESMOPRESSIN ACETATE
     Indication: Benign prostatic hyperplasia
     Dosage: 50 MICROGRAM, QD
     Dates: start: 20240405, end: 20240705
  13. ALFUZOSIN [Concomitant]
     Active Substance: ALFUZOSIN
     Indication: Benign prostatic hyperplasia
     Dosage: 10 MILLIGRAM, QD
     Dates: start: 20240405
  14. ESCHERICHIA COLI [Concomitant]
     Active Substance: ESCHERICHIA COLI
     Indication: Benign prostatic hyperplasia
     Dosage: 60 MILLIGRAM, QD
     Dates: start: 20240405, end: 20240410
  15. ARTEMISIA ARGYI LEAF [Concomitant]
     Active Substance: ARTEMISIA ARGYI LEAF
     Indication: Benign prostatic hyperplasia
     Dosage: 90 MILLIGRAM, BID
     Dates: start: 20240405, end: 20240410
  16. LOXOPROFEN SODIUM [Concomitant]
     Active Substance: LOXOPROFEN SODIUM
     Indication: Benign prostatic hyperplasia
     Dosage: 60 MILLIGRAM, BID
     Dates: start: 20240405, end: 20240410
  17. PENTASA [Concomitant]
     Active Substance: MESALAMINE
     Dosage: 2 GRAM, BID
     Dates: start: 20230602
  18. AZATHIOPRINE [Concomitant]
     Active Substance: AZATHIOPRINE
     Dosage: 75 MILLIGRAM, QD
     Dates: start: 202212, end: 20230619
  19. AZATHIOPRINE [Concomitant]
     Active Substance: AZATHIOPRINE
     Dosage: 50 MILLIGRAM, QD
     Dates: start: 20230619
  20. MONUROL [Concomitant]
     Active Substance: FOSFOMYCIN TROMETHAMINE
     Indication: Benign prostatic hyperplasia
     Dosage: 8 GRAM, QD
     Dates: start: 20240405, end: 20240406
  21. Azabio [Concomitant]
     Dosage: 25 MILLIGRAM, QD
     Dates: start: 20230619, end: 20230912
  22. INSTILLAGEL [Concomitant]
     Active Substance: CHLORHEXIDINE GLUCONATE\LIDOCAINE HYDROCHLORIDE
     Indication: Premedication
     Route: 061
     Dates: start: 20240405, end: 20240405

REACTIONS (1)
  - Urinary retention [Recovered/Resolved]

NARRATIVE: CASE EVENT DATE: 20240406
